FAERS Safety Report 4841859-3 (Version None)
Quarter: 2005Q4

REPORT INFORMATION
  Report Type: 
  Country: None (occurrence: None)
  Receive Date: 20051130
  Receipt Date: 20051122
  Transmission Date: 20060501
  Serious: Yes (Hospitalization)
  Sender: FDA-Public Use
  Company Number: 2005CG01944

PATIENT
  Age: 81 Year
  Sex: Female
  Weight: 50 kg

DRUGS (5)
  1. MOPRAL [Suspect]
     Route: 048
     Dates: start: 20050801, end: 20051014
  2. MOPRAL [Suspect]
     Route: 048
     Dates: start: 20051025, end: 20051031
  3. TRIATEC [Concomitant]
  4. KARDEGIC [Concomitant]
     Route: 048
  5. LANTUS [Concomitant]

REACTIONS (3)
  - COMA [None]
  - CONVULSION [None]
  - ENCEPHALOPATHY [None]
